FAERS Safety Report 6307889-X (Version None)
Quarter: 2009Q3

REPORT INFORMATION
  Report Type: 
  Country: None (occurrence: None)
  Receive Date: 20090812
  Receipt Date: 20090812
  Transmission Date: 20100115
  Serious: Yes (Hospitalization)
  Sender: FDA-Public Use
  Company Number: None

PATIENT
  Age: 54 Year
  Sex: Female
  Weight: 107 kg

DRUGS (6)
  1. SUTENT [Suspect]
     Indication: METASTASES TO CENTRAL NERVOUS SYSTEM
     Dosage: 37.5MG PO
     Route: 048
     Dates: start: 20090618, end: 20090730
  2. LEXAPRO [Concomitant]
  3. PHENERGAN [Concomitant]
  4. ARIXTRA [Concomitant]
  5. XELODA [Concomitant]
  6. . [Concomitant]

REACTIONS (6)
  - ARTHRALGIA [None]
  - BRAIN NATRIURETIC PEPTIDE INCREASED [None]
  - CARDIAC FAILURE CONGESTIVE [None]
  - FATIGUE [None]
  - TACHYCARDIA [None]
  - TREATMENT NONCOMPLIANCE [None]
